FAERS Safety Report 20484947 (Version 3)
Quarter: 2022Q4

REPORT INFORMATION
  Report Type: Spontaneous
  Country: US (occurrence: US)
  Receive Date: 20220217
  Receipt Date: 20221123
  Transmission Date: 20230113
  Serious: No
  Sender: FDA-Public Use
  Company Number: US-SA-SAC20220214000202

PATIENT
  Age: 60 Year
  Sex: Male

DRUGS (8)
  1. DUPIXENT [Suspect]
     Active Substance: DUPILUMAB
     Indication: Dermatitis atopic
     Dosage: 300 MG, QOW
     Route: 058
     Dates: start: 20201218
  2. ATORVASTATIN [Concomitant]
     Active Substance: ATORVASTATIN
  3. MYCOPHENOLIC ACID [Concomitant]
     Active Substance: MYCOPHENOLIC ACID
  4. EZETIMIBE [Concomitant]
     Active Substance: EZETIMIBE
  5. FOSAMAX [Concomitant]
     Active Substance: ALENDRONATE SODIUM
  6. PREDNISONE [Concomitant]
     Active Substance: PREDNISONE
  7. ASPIRIN [Concomitant]
     Active Substance: ASPIRIN
  8. TRIANEX [Concomitant]
     Active Substance: TRIAMCINOLONE ACETONIDE
     Dosage: 0.05

REACTIONS (2)
  - Dermatitis atopic [Not Recovered/Not Resolved]
  - Sleep disorder [Not Recovered/Not Resolved]
